FAERS Safety Report 6147052-9 (Version None)
Quarter: 2009Q2

REPORT INFORMATION
  Report Type: 
  Country: None (occurrence: None)
  Receive Date: 20090402
  Receipt Date: 20090321
  Transmission Date: 20091009
  Serious: Yes (Hospitalization)
  Sender: FDA-Public Use
  Company Number: 1000005564

PATIENT
  Age: 35 Year
  Sex: Female
  Weight: 70 kg

DRUGS (2)
  1. ESCITALOPRAM OXALATE [Suspect]
     Dosage: 1000 MG (1000MG, ONCE), ORAL
     Route: 048
     Dates: start: 20090321, end: 20090321
  2. ALCOHOL [Suspect]
     Dosage: 1/2 BOTTLE OF HARD LIQUOR (35-40%) (ONCE), ORAL
     Route: 048
     Dates: start: 20090321, end: 20090321

REACTIONS (6)
  - ABDOMINAL PAIN UPPER [None]
  - DIZZINESS [None]
  - FATIGUE [None]
  - INTENTIONAL OVERDOSE [None]
  - NAUSEA [None]
  - SUICIDE ATTEMPT [None]
